FAERS Safety Report 21445167 (Version 1)
Quarter: 2022Q4

REPORT INFORMATION
  Report Type: Spontaneous
  Country: US (occurrence: None)
  Receive Date: 20221011
  Receipt Date: 20221011
  Transmission Date: 20230113
  Serious: Yes (Life-Threatening, Hospitalization)
  Sender: FDA-Public Use
  Company Number: None

PATIENT

DRUGS (2)
  1. PROGRAF [Suspect]
     Active Substance: TACROLIMUS
  2. COSMETICS [Suspect]
     Active Substance: COSMETICS

REACTIONS (3)
  - Urinary tract infection [None]
  - Gastrointestinal haemorrhage [None]
  - Renal transplant [None]
